FAERS Safety Report 9179810 (Version 1)
Quarter: 2012Q4

REPORT INFORMATION
  Report Type: 
  Country: GB (occurrence: GB)
  Receive Date: 20121029
  Receipt Date: 20121029
  Transmission Date: 20130627
  Serious: Yes (Other)
  Sender: FDA-Public Use
  Company Number: GB-B.I. PHARMACEUTICALS,INC./RIDGEFIELD-2012-UK-01540UK

PATIENT
  Age: 59 Year
  Sex: Male
  Weight: 105 kg

DRUGS (6)
  1. DABIGATRAN [Suspect]
     Indication: ATRIAL FIBRILLATION
     Dosage: 300 mg
     Route: 048
     Dates: start: 20120927, end: 20121002
  2. DABIGATRAN [Suspect]
     Indication: LEFT VENTRICULAR DYSFUNCTION
  3. ASPIRIN [Concomitant]
     Dosage: 75 mg
     Dates: end: 20120928
  4. BISOPROLOL [Concomitant]
     Dosage: 1.25 mg
  5. LOSARTAN [Concomitant]
     Dosage: 100 mg
  6. ROSUVASTATIN [Concomitant]
     Dosage: 5 mg

REACTIONS (2)
  - Dysphagia [Recovered/Resolved]
  - Throat irritation [Recovered/Resolved]
